FAERS Safety Report 4476627-8 (Version None)
Quarter: 2004Q4

REPORT INFORMATION
  Report Type: 
  Country: None (occurrence: None)
  Receive Date: 20041015
  Receipt Date: 20041015
  Transmission Date: 20050328
  Serious: Yes (Hospitalization)
  Sender: FDA-Public Use
  Company Number: None

PATIENT
  Age: 76 Year
  Sex: Male
  Weight: 97.7 kg

DRUGS (20)
  1. ENALAPRIL MALEATE [Suspect]
     Indication: CARDIAC FAILURE CONGESTIVE
     Dosage: 10 MG   QD   ORAL
     Route: 048
  2. ENALAPRIL MALEATE [Suspect]
     Indication: HYPERTENSION
     Dosage: 10 MG   QD   ORAL
     Route: 048
  3. SPIRONOLACTONE [Suspect]
     Indication: CARDIAC FAILURE CONGESTIVE
     Dosage: 25 MG   QD   ORAL
     Route: 048
  4. ACETAMINOPHEN [Concomitant]
  5. CARVEDILOL [Concomitant]
  6. CLOPIDOGREL [Concomitant]
  7. CYCLOBENZAPRINE HCL [Concomitant]
  8. DIGOXIN [Concomitant]
  9. FLUOXETINE [Concomitant]
  10. FUROSEMIDE [Concomitant]
  11. GABAPENTIN [Concomitant]
  12. GEMFIBROZIL [Concomitant]
  13. GLIPIZIDE [Concomitant]
  14. INSULIN [Concomitant]
  15. ISOSORBIDE DINITRATE [Concomitant]
  16. LEVOTHYROXINE SODIUM [Concomitant]
  17. LOVASTATIN [Concomitant]
  18. NITROGLYCERIN -SL- [Concomitant]
  19. RANITIDINE [Concomitant]
  20. WARFARIN [Concomitant]

REACTIONS (7)
  - ASTHENIA [None]
  - BLOOD CREATININE INCREASED [None]
  - BLOOD POTASSIUM DECREASED [None]
  - BLOOD POTASSIUM INCREASED [None]
  - BLOOD UREA INCREASED [None]
  - CHEST PAIN [None]
  - DIZZINESS [None]
